FAERS Safety Report 15680320 (Version 1)
Quarter: 2018Q4

REPORT INFORMATION
  Report Type: Spontaneous
  Country: ZA (occurrence: ZA)
  Receive Date: 20181203
  Receipt Date: 20181203
  Transmission Date: 20190205
  Serious: Yes (Hospitalization)
  Sender: FDA-Public Use
  Company Number: ZA-PFIZER INC-2018492503

PATIENT
  Age: 79 Year
  Sex: Male

DRUGS (4)
  1. LOMANOR [Suspect]
     Active Substance: AMLODIPINE BESYLATE
     Dosage: 5 MG, UNK
  2. ADCO-RETIC [Suspect]
     Active Substance: AMILORIDE HYDROCHLORIDE\HYDROCHLOROTHIAZIDE
     Dosage: 5/50 MG, UNK
  3. ACCUMAX [Suspect]
     Active Substance: QUINAPRIL HYDROCHLORIDE
     Dosage: 20 MG, UNK
  4. AMITRIPTYLIN [Suspect]
     Active Substance: AMITRIPTYLINE
     Dosage: 25 MG, UNK

REACTIONS (1)
  - Bladder disorder [Unknown]
